FAERS Safety Report 7638496-4 (Version None)
Quarter: 2011Q3

REPORT INFORMATION
  Report Type: 
  Country: None (occurrence: None)
  Receive Date: 20110727
  Receipt Date: 20110712
  Transmission Date: 20111222
  Serious: Yes (Other)
  Sender: FDA-Public Use
  Company Number: PHHY2011US55565

PATIENT
  Sex: Male
  Weight: 79.819 kg

DRUGS (3)
  1. IBUPROFEN [Concomitant]
     Indication: OSTEOARTHRITIS
     Dosage: 200 MG, BID
     Route: 048
     Dates: start: 20090101
  2. GLUCOSAMINE [Concomitant]
     Indication: OSTEOARTHRITIS
     Dosage: 1500 MG, QD
     Route: 048
     Dates: start: 20070101
  3. DIOVAN [Suspect]
     Indication: HYPERTENSION
     Dosage: 320 MG, DAILY
     Route: 048
     Dates: start: 20101001

REACTIONS (3)
  - ARRHYTHMIA [None]
  - TACHYCARDIA [None]
  - ATRIAL FIBRILLATION [None]
